FAERS Safety Report 6241511-6 (Version None)
Quarter: 2009Q2

REPORT INFORMATION
  Report Type: 
  Country: None (occurrence: None)
  Receive Date: 20090623
  Receipt Date: 20040211
  Transmission Date: 20091009
  Serious: Yes (Hospitalization)
  Sender: FDA-Public Use
  Company Number: AT-ROCHE-352136

PATIENT
  Sex: Male
  Weight: 70 kg

DRUGS (42)
  1. DACLIZUMAB [Suspect]
     Dosage: ADMINISTERED 24 HOURS PRE-TRANSPLANT.
     Route: 042
     Dates: start: 20031011, end: 20031011
  2. DACLIZUMAB [Suspect]
     Dosage: ADMINIISTERED EVERY TWO WEEKS FOR A TOTAL OF FOUR DOSES.
     Route: 042
     Dates: start: 20031025, end: 20031209
  3. MYCOPHENOLATE MOFETIL [Suspect]
     Route: 048
     Dates: start: 20031011, end: 20031011
  4. MYCOPHENOLATE MOFETIL [Suspect]
     Route: 048
     Dates: start: 20031012, end: 20031012
  5. MYCOPHENOLATE MOFETIL [Suspect]
     Route: 048
     Dates: start: 20031013, end: 20031014
  6. MYCOPHENOLATE MOFETIL [Suspect]
     Route: 048
     Dates: start: 20031015, end: 20031016
  7. MYCOPHENOLATE MOFETIL [Suspect]
     Route: 048
     Dates: start: 20031018, end: 20031019
  8. MYCOPHENOLATE MOFETIL [Suspect]
     Route: 048
     Dates: start: 20031020, end: 20031116
  9. MYCOPHENOLATE MOFETIL [Suspect]
     Route: 048
     Dates: start: 20031117, end: 20031123
  10. MYCOPHENOLATE MOFETIL [Suspect]
     Route: 048
     Dates: start: 20031124, end: 20031208
  11. MYCOPHENOLATE MOFETIL [Suspect]
     Route: 048
     Dates: start: 20031209, end: 20040104
  12. MYCOPHENOLATE MOFETIL [Suspect]
     Route: 048
     Dates: start: 20040105, end: 20040208
  13. MYCOPHENOLATE MOFETIL [Suspect]
     Route: 048
     Dates: start: 20040209, end: 20040223
  14. MYCOPHENOLATE MOFETIL [Suspect]
     Route: 048
     Dates: start: 20040524
  15. SIROLIMUS [Suspect]
     Route: 048
     Dates: start: 20031011, end: 20031016
  16. SIROLIMUS [Suspect]
     Route: 048
     Dates: start: 20031019, end: 20040208
  17. SIROLIMUS [Suspect]
     Route: 048
     Dates: start: 20040209, end: 20040222
  18. SIROLIMUS [Suspect]
     Route: 048
     Dates: start: 20040223, end: 20040511
  19. SIROLIMUS [Suspect]
     Route: 048
     Dates: start: 20040513, end: 20040531
  20. SIROLIMUS [Suspect]
     Route: 048
     Dates: start: 20040601, end: 20040704
  21. SIROLIMUS [Suspect]
     Route: 048
     Dates: start: 20040705
  22. PREDNISOLONE [Suspect]
     Route: 048
     Dates: start: 20031013
  23. METHYLPREDNISOLONE [Suspect]
     Route: 042
     Dates: start: 20031011, end: 20031011
  24. METHYLPREDNISOLONE [Suspect]
     Route: 042
     Dates: start: 20031011, end: 20031011
  25. METHYLPREDNISOLONE [Suspect]
     Route: 042
     Dates: start: 20031012, end: 20031012
  26. METHYLPREDNISOLONE [Suspect]
     Route: 048
     Dates: start: 20031019
  27. PANTOPRAZOLE SODIUM [Concomitant]
     Route: 048
     Dates: start: 20031001
  28. DILATREND [Concomitant]
     Route: 048
     Dates: start: 20031011
  29. NORVASC [Concomitant]
     Route: 048
     Dates: start: 20031011, end: 20031011
  30. NORVASC [Concomitant]
     Route: 048
     Dates: start: 20031012, end: 20040113
  31. NORVASC [Concomitant]
     Route: 048
     Dates: start: 20040119
  32. COTRIDIN [Concomitant]
     Route: 048
     Dates: start: 20031001
  33. ASPIRIN [Concomitant]
     Route: 048
     Dates: start: 20031001
  34. INSULIN NOVOMIX [Concomitant]
     Dosage: DIVIDED INTO DOSES ON DEMAND.
     Route: 048
     Dates: start: 20031101
  35. FLOXACILLIN SODIUM [Concomitant]
     Route: 048
     Dates: start: 20031011, end: 20031011
  36. HEPATITIS B IMMUNE GLOBULIN (HUMAN) [Concomitant]
     Route: 042
     Dates: start: 20031011, end: 20031016
  37. LABETALOL HCL [Concomitant]
     Route: 048
     Dates: start: 20031012
  38. METOPROLOL SUCCINATE [Concomitant]
     Route: 048
     Dates: start: 20031012, end: 20031012
  39. PENICILLIN [Concomitant]
     Route: 042
     Dates: start: 20031011, end: 20031011
  40. SULFAMETHOXAZOLE AND TRIMETHOPRIM [Concomitant]
     Dosage: DRUG: TRIMETHOPRIM 160 MG, SULFAMETHOXAZOLE
     Route: 048
     Dates: start: 20031013, end: 20040105
  41. SULFAMETHOXAZOLE AND TRIMETHOPRIM [Concomitant]
     Route: 048
     Dates: start: 20040120, end: 20040209
  42. SULFAMETHOXAZOLE AND TRIMETHOPRIM [Concomitant]
     Route: 048
     Dates: start: 20040524, end: 20040705

REACTIONS (2)
  - RENAL CELL CARCINOMA [None]
  - TYPE 2 DIABETES MELLITUS [None]
